FAERS Safety Report 24587105 (Version 1)
Quarter: 2024Q4

REPORT INFORMATION
  Report Type: Spontaneous
  Country: CH (occurrence: CH)
  Receive Date: 20241107
  Receipt Date: 20241107
  Transmission Date: 20250114
  Serious: Yes (Hospitalization)
  Sender: BOEHRINGER INGELHEIM
  Company Number: None

PATIENT
  Age: 82 Year
  Sex: Male

DRUGS (16)
  1. GLYXAMBI [Suspect]
     Active Substance: EMPAGLIFLOZIN\LINAGLIPTIN
     Indication: Insulin-requiring type 2 diabetes mellitus
     Dosage: 10/5 MG, 1-0-0-0, GESTOPPT, EINNAHME SEIT MEHREREN JAHREN, NEU WIEDER IM VERLAUF JUNI 2024, ZUVOR BE
     Route: 048
     Dates: start: 202406, end: 20240723
  2. GLYXAMBI [Suspect]
     Active Substance: EMPAGLIFLOZIN\LINAGLIPTIN
     Dosage: 10/5 MG, 1-0-0-0, GESTOPPT, EINNAHME SEIT MEHREREN JAHREN, NEU WIEDER IM VERLAUF JUNI 2024, ZUVOR BE
     Route: 048
     Dates: start: 2019, end: 202403
  3. AMLODIPINE BESYLATE\OLMESARTAN MEDOXOMIL [Suspect]
     Active Substance: AMLODIPINE BESYLATE\OLMESARTAN MEDOXOMIL
     Indication: Hypertension
     Route: 048
     Dates: start: 202406, end: 20240723
  4. KEPPRA [Suspect]
     Active Substance: LEVETIRACETAM
     Indication: Epilepsy
     Dosage: EINNAHME SEIT MEHREREN JAHREN
     Dates: start: 2009
  5. FOLIC ACID [Concomitant]
     Active Substance: FOLIC ACID
     Indication: Product used for unknown indication
     Route: 048
  6. MAGNESIOCARD ORANGE [Concomitant]
     Indication: Product used for unknown indication
     Route: 048
  7. CALCIUM CARBONATE\CHOLECALCIFEROL [Concomitant]
     Active Substance: CALCIUM CARBONATE\CHOLECALCIFEROL
     Indication: Product used for unknown indication
     Dosage: FILMTABL DS 500/800 0 - 1 - 0 - 0
     Route: 048
  8. CANDESARTAN CILEXETIL\HYDROCHLOROTHIAZIDE [Concomitant]
     Active Substance: CANDESARTAN CILEXETIL\HYDROCHLOROTHIAZIDE
     Indication: Hypertension
     Dosage: ZENTIVA TABL 8/12.5 MG 1 - 0 - 0 - 0 MIND. SEIT 03/2024 BIS MIND. 05.06.2024,
     Route: 048
     Dates: start: 202403, end: 202406
  9. LINAGLIPTIN [Concomitant]
     Active Substance: LINAGLIPTIN
     Indication: Insulin-requiring type 2 diabetes mellitus
     Route: 048
     Dates: start: 202403, end: 202406
  10. AMLODIPINE [Concomitant]
     Active Substance: AMLODIPINE BESYLATE
     Indication: Hypertension
     Route: 048
     Dates: start: 202403, end: 202406
  11. PHENPROCOUMON [Concomitant]
     Active Substance: PHENPROCOUMON
     Indication: Product used for unknown indication
     Dosage: MARCOUMAR TABL 3 MG 0 - 0 - 0.75 - 0 P.O.
     Route: 048
  12. TRESIBA [Concomitant]
     Active Substance: INSULIN DEGLUDEC
     Indication: Insulin-requiring type 2 diabetes mellitus
     Route: 058
  13. JARDIANCE [Concomitant]
     Active Substance: EMPAGLIFLOZIN
     Indication: Insulin-requiring type 2 diabetes mellitus
     Route: 048
     Dates: start: 202403, end: 202406
  14. JARDIANCE [Concomitant]
     Active Substance: EMPAGLIFLOZIN
     Route: 048
     Dates: start: 20240723
  15. PRADIF T [Concomitant]
     Active Substance: TAMSULOSIN HYDROCHLORIDE
     Indication: Product used for unknown indication
     Route: 048
  16. ATORVASTATIN [Concomitant]
     Active Substance: ATORVASTATIN
     Indication: Product used for unknown indication
     Dosage: VIATRIS O. MEPHA  FILMTABL BLIST 40 0 - 0 - 1 - 0
     Route: 048

REACTIONS (2)
  - Pemphigoid [Recovering/Resolving]
  - Linear IgA disease [Recovering/Resolving]

NARRATIVE: CASE EVENT DATE: 20240701
